FAERS Safety Report 10724664 (Version 3)
Quarter: 2015Q1

REPORT INFORMATION
  Report Type: Spontaneous
  Country: AE (occurrence: AE)
  Receive Date: 20150120
  Receipt Date: 20150208
  Transmission Date: 20150721
  Serious: No
  Sender: FDA-Public Use
  Company Number: AE-EMD SERONO-8004970

PATIENT
  Age: 44 Year
  Sex: Female
  Weight: 66 kg

DRUGS (2)
  1. CETROTIDE [Suspect]
     Active Substance: CETRORELIX ACETATE
     Indication: OVULATION INDUCTION
     Route: 058
     Dates: start: 20141023, end: 20141026
  2. GONAL-F [Concomitant]
     Active Substance: FOLLITROPIN
     Indication: OVULATION INDUCTION
     Route: 058
     Dates: start: 20141018, end: 20141026

REACTIONS (4)
  - Premature ovulation [Unknown]
  - Drug ineffective [Unknown]
  - Ovarian disorder [Unknown]
  - Blood luteinising hormone increased [Recovered/Resolved]

NARRATIVE: CASE EVENT DATE: 20141026
